FAERS Safety Report 10970317 (Version 1)
Quarter: 2015Q1

REPORT INFORMATION
  Report Type: Spontaneous
  Country: US (occurrence: None)
  Receive Date: 20150330
  Receipt Date: 20150330
  Transmission Date: 20150721
  Serious: No
  Sender: FDA-Public Use
  Company Number: None

PATIENT
  Age: 71 Year
  Sex: Female
  Weight: 40.82 kg

DRUGS (12)
  1. RANITIDINE [Concomitant]
     Active Substance: RANITIDINE\RANITIDINE HYDROCHLORIDE
  2. AMOLODIPINE [Concomitant]
  3. FISH OIL [Concomitant]
     Active Substance: FISH OIL
  4. BENEZAPRIL [Concomitant]
  5. B-50 COMPLEX [Concomitant]
  6. METOPROLOL [Concomitant]
     Active Substance: METOPROLOL
  7. CELECOXIB. [Suspect]
     Active Substance: CELECOXIB
     Indication: OSTEOARTHRITIS
     Route: 048
     Dates: start: 20150202, end: 20150328
  8. VITAMIN E [Concomitant]
     Active Substance: .ALPHA.-TOCOPHEROL
  9. VITAMIN C [Concomitant]
     Active Substance: ASCORBIC ACID
  10. CALCIUM [Concomitant]
     Active Substance: CALCIUM
  11. OMAPRAZAPOLE [Concomitant]
  12. SR MULTI VITAMIN [Concomitant]

REACTIONS (3)
  - Product substitution issue [None]
  - Drug effect decreased [None]
  - Pain [None]

NARRATIVE: CASE EVENT DATE: 20150328
